FAERS Safety Report 5035986-8 (Version None)
Quarter: 2006Q2

REPORT INFORMATION
  Report Type: 
  Country: None (occurrence: None)
  Receive Date: 20060526
  Receipt Date: 20060215
  Transmission Date: 20061013
  Serious: Yes (Hospitalization)
  Sender: FDA-Public Use
  Company Number: 221976

PATIENT
  Sex: Male

DRUGS (3)
  1. RAPTIVA [Suspect]
     Indication: PSORIASIS
     Dosage: 100 MG, SINGLE, SUBCUTANEOUS
     Route: 058
     Dates: start: 20060119
  2. FLUOCINOLONE (FLUOCINOLONE ACETONIDE) [Concomitant]
  3. CLOBETASOL (CLOBETASOL PROPIONATE) [Concomitant]

REACTIONS (2)
  - MENINGITIS ASEPTIC [None]
  - OVERDOSE [None]
